FAERS Safety Report 8511276-3 (Version None)
Quarter: 2012Q3

REPORT INFORMATION
  Report Type: 
  Country: None (occurrence: None)
  Receive Date: 20120716
  Receipt Date: 20120711
  Transmission Date: 20120928
  Serious: Yes (Other)
  Sender: FDA-Public Use
  Company Number: CA-JNJFOC-20120706037

PATIENT
  Sex: Male

DRUGS (3)
  1. SIMPONI [Suspect]
     Indication: RHEUMATOID ARTHRITIS
     Route: 058
     Dates: start: 20101028
  2. METHOTREXATE [Concomitant]
     Dates: start: 20120605, end: 20120703
  3. METHOTREXATE [Concomitant]

REACTIONS (3)
  - CHOLECYSTECTOMY [None]
  - HEPATIC CIRRHOSIS [None]
  - HEPATOMEGALY [None]
